FAERS Safety Report 25716392 (Version 1)
Quarter: 2025Q3

REPORT INFORMATION
  Report Type: Report from Study
  Country: CA (occurrence: CA)
  Receive Date: 20250822
  Receipt Date: 20250822
  Transmission Date: 20251020
  Serious: Yes (Death)
  Sender: IPSEN BIOPHARMACEUTICALS, INC.
  Company Number: CA-IPSEN Group, Research and Development-2025-20326

PATIENT
  Age: 67 Year
  Sex: Male

DRUGS (12)
  1. LANREOTIDE ACETATE [Suspect]
     Active Substance: LANREOTIDE ACETATE
     Indication: Pancreatic neuroendocrine tumour
     Dates: start: 20190620
  2. IMODIUM [Concomitant]
     Active Substance: LOPERAMIDE HYDROCHLORIDE
  3. CREON [Concomitant]
     Active Substance: PANCRELIPASE AMYLASE\PANCRELIPASE LIPASE\PANCRELIPASE PROTEASE
  4. CURCUMIN [Concomitant]
     Active Substance: CURCUMIN
  5. HERBALS\TURMERIC [Concomitant]
     Active Substance: HERBALS\TURMERIC
  6. VITAMIN D3 [Concomitant]
     Active Substance: CHOLECALCIFEROL
  7. Magnesium Bi-Glycinate [Concomitant]
  8. Zinc Bi-Glycinate [Concomitant]
  9. FERAMAX [Concomitant]
     Active Substance: IRON\POLYSACCHARIDES
  10. VITAMIN B12 [Concomitant]
     Active Substance: CYANOCOBALAMIN
  11. Replavite [Concomitant]
  12. POTASSIUM CHLORIDE [Concomitant]
     Active Substance: POTASSIUM CHLORIDE
     Dosage: 8MEQ

REACTIONS (2)
  - Death [Fatal]
  - Inappropriate schedule of product administration [Unknown]

NARRATIVE: CASE EVENT DATE: 20250811
